FAERS Safety Report 4518090-4 (Version None)
Quarter: 2004Q4

REPORT INFORMATION
  Report Type: 
  Country: None (occurrence: None)
  Receive Date: 20041130
  Receipt Date: 20041122
  Transmission Date: 20050328
  Serious: Yes (Hospitalization, Other)
  Sender: FDA-Public Use
  Company Number: 2004097171

PATIENT
  Age: 51 Year
  Sex: Female
  Weight: 68.0396 kg

DRUGS (3)
  1. LIPITOR [Suspect]
     Indication: TYPE IIA HYPERLIPIDAEMIA
     Dosage: 40 MG (40 MG, 1 IN 1 D), ORAL
     Route: 048
     Dates: end: 20030101
  2. PROPRANOLOL [Concomitant]
  3. LOSARTAN POTASSIUM (LOSARTAN POTSSIUM) [Concomitant]

REACTIONS (23)
  - ABNORMAL BEHAVIOUR [None]
  - ARTERIAL SPASM [None]
  - BLOOD CREATINE PHOSPHOKINASE INCREASED [None]
  - CAROTID ARTERY DISEASE [None]
  - CATHETERISATION CARDIAC [None]
  - CEREBRAL ISCHAEMIA [None]
  - CHOLELITHIASIS [None]
  - COGNITIVE DISORDER [None]
  - DEHYDRATION [None]
  - DYSARTHRIA [None]
  - DYSPHAGIA [None]
  - FALL [None]
  - GASTRITIS [None]
  - GASTROOESOPHAGEAL REFLUX DISEASE [None]
  - GLOBAL AMNESIA [None]
  - IMPAIRED GASTRIC EMPTYING [None]
  - INCOHERENT [None]
  - INJURY [None]
  - LOSS OF CONSCIOUSNESS [None]
  - MYALGIA [None]
  - NEUROLOGICAL SYMPTOM [None]
  - OESOPHAGEAL ULCER [None]
  - VOMITING [None]
